FAERS Safety Report 6332194-5 (Version None)
Quarter: 2009Q3

REPORT INFORMATION
  Report Type: 
  Country: None (occurrence: None)
  Receive Date: 20090828
  Receipt Date: 20090819
  Transmission Date: 20100115
  Serious: Yes (Hospitalization)
  Sender: FDA-Public Use
  Company Number: CA-ASTRAZENECA-2009SE08895

PATIENT
  Age: 74 Year
  Sex: Female

DRUGS (7)
  1. NOLVADEX [Suspect]
     Route: 048
     Dates: start: 20040327, end: 20051206
  2. ARIMIDEX [Suspect]
     Route: 048
     Dates: start: 20051220
  3. CRESTOR [Suspect]
     Route: 048
  4. PLAQUENIL [Suspect]
  5. PLAQUENIL [Suspect]
  6. ALENDRONATE SODIUM [Concomitant]
     Dosage: WEEKLY
  7. CALCIUM [Concomitant]

REACTIONS (7)
  - ALOPECIA [None]
  - ARTHRALGIA [None]
  - ASTHENIA [None]
  - HAIR GROWTH ABNORMAL [None]
  - HOT FLUSH [None]
  - INSOMNIA [None]
  - TRANSIENT ISCHAEMIC ATTACK [None]
